FAERS Safety Report 22290189 (Version 6)
Quarter: 2025Q2

REPORT INFORMATION
  Report Type: Report from Study
  Country: US (occurrence: US)
  Receive Date: 20230505
  Receipt Date: 20250524
  Transmission Date: 20250717
  Serious: Yes (Other)
  Sender: ABBVIE
  Company Number: US-ABBVIE-4308363

PATIENT
  Age: 32 Year
  Sex: Female

DRUGS (3)
  1. HUMIRA [Suspect]
     Active Substance: ADALIMUMAB
     Indication: Rheumatoid arthritis
     Dosage: CITRATE FREE. FORM STRENGTH: 40 MG, LAST ADMIN DATE- MAY 2022
     Route: 058
     Dates: start: 20220506
  2. HUMIRA [Suspect]
     Active Substance: ADALIMUMAB
     Indication: Uveitis
     Route: 058
     Dates: start: 20220526
  3. HUMIRA [Suspect]
     Active Substance: ADALIMUMAB
     Route: 058
     Dates: start: 2018

REACTIONS (8)
  - Corneal disorder [Recovering/Resolving]
  - Ocular discomfort [Not Recovered/Not Resolved]
  - Visual impairment [Unknown]
  - Hepatic enzyme increased [Not Recovered/Not Resolved]
  - Hypoacusis [Unknown]
  - Vision blurred [Not Recovered/Not Resolved]
  - Eye operation [Recovering/Resolving]
  - Cough [Not Recovered/Not Resolved]

NARRATIVE: CASE EVENT DATE: 20230101
